FAERS Safety Report 8287824-8 (Version None)
Quarter: 2012Q2

REPORT INFORMATION
  Report Type: 
  Country: None (occurrence: None)
  Receive Date: 20120416
  Receipt Date: 20120410
  Transmission Date: 20120825
  Serious: Yes (Life-Threatening)
  Sender: FDA-Public Use
  Company Number: FR-ASTRAZENECA-2012SE23556

PATIENT
  Age: 47 Year
  Sex: Male

DRUGS (6)
  1. MIDAZOLAM HCL [Suspect]
     Indication: GENERAL ANAESTHESIA
     Route: 042
     Dates: start: 20120313, end: 20120313
  2. XANAX [Concomitant]
  3. DIPRIVAN [Suspect]
     Indication: GENERAL ANAESTHESIA
     Route: 042
     Dates: start: 20120313, end: 20120313
  4. SUFENTANIL CITRATE [Suspect]
     Indication: GENERAL ANAESTHESIA
     Route: 042
     Dates: start: 20120313, end: 20120313
  5. CELOCURINE [Suspect]
     Indication: GENERAL ANAESTHESIA
     Route: 042
     Dates: start: 20120313, end: 20120313
  6. CEFUROXIME [Suspect]
     Route: 042
     Dates: start: 20120313, end: 20120313

REACTIONS (1)
  - ANAPHYLACTIC SHOCK [None]
